FAERS Safety Report 25844097 (Version 1)
Quarter: 2025Q3

REPORT INFORMATION
  Report Type: Spontaneous
  Country: US (occurrence: US)
  Receive Date: 20250925
  Receipt Date: 20250925
  Transmission Date: 20251021
  Serious: No
  Sender: TEVA
  Company Number: US-TEVA-VS-3372633

PATIENT
  Age: 29 Year
  Sex: Female

DRUGS (4)
  1. SEASONIQUE [Suspect]
     Active Substance: ETHINYL ESTRADIOL\LEVONORGESTREL
     Indication: Contraception
     Route: 065
     Dates: start: 2025, end: 2025
  2. ZINC OXIDE [Concomitant]
     Active Substance: ZINC OXIDE
     Indication: Product used for unknown indication
  3. ALLEGRA [Concomitant]
     Active Substance: FEXOFENADINE HYDROCHLORIDE
     Indication: Product used for unknown indication
  4. DUPIXENT [Suspect]
     Active Substance: DUPILUMAB
     Indication: Idiopathic urticaria
     Route: 058
     Dates: start: 20250620

REACTIONS (4)
  - Urticaria [Not Recovered/Not Resolved]
  - Erythema [Unknown]
  - Pruritus [Recovering/Resolving]
  - Skin burning sensation [Unknown]

NARRATIVE: CASE EVENT DATE: 20250101
